FAERS Safety Report 8557858-4 (Version None)
Quarter: 2012Q3

REPORT INFORMATION
  Report Type: 
  Country: None (occurrence: None)
  Receive Date: 20120801
  Receipt Date: 20120724
  Transmission Date: 20120928
  Serious: Yes (Death)
  Sender: FDA-Public Use
  Company Number: FR-GLAXOSMITHKLINE-B0799598A

PATIENT
  Sex: Male

DRUGS (6)
  1. CABAZITAXEL [Suspect]
     Indication: PROSTATE CANCER METASTATIC
     Dosage: 35MG PER DAY
     Route: 042
     Dates: start: 20120209, end: 20120209
  2. POLARAMINE [Suspect]
     Indication: PREMEDICATION
     Dosage: 5MG PER DAY
     Route: 042
     Dates: start: 20120209, end: 20120209
  3. METHYLPREDNISOLONE [Suspect]
     Indication: PREMEDICATION
     Dosage: 60MG PER DAY
     Route: 042
     Dates: start: 20120209, end: 20120209
  4. PREDNISONE TAB [Suspect]
     Indication: PREMEDICATION
     Dosage: 5MG PER DAY
     Route: 042
     Dates: start: 20120209, end: 20120209
  5. GLOBULAR PELLET [Concomitant]
     Route: 065
     Dates: start: 20120203
  6. ZANTAC [Suspect]
     Indication: PREMEDICATION
     Dosage: 50MG SINGLE DOSE
     Route: 042
     Dates: start: 20120209, end: 20120209

REACTIONS (7)
  - ANAEMIA [None]
  - BACTERIAL SEPSIS [None]
  - NEUTROPENIA [None]
  - FEBRILE BONE MARROW APLASIA [None]
  - ASTHENIA [None]
  - THROMBOCYTOPENIA [None]
  - DECREASED APPETITE [None]
